FAERS Safety Report 6622989-2 (Version None)
Quarter: 2010Q1

REPORT INFORMATION
  Report Type: 
  Country: None (occurrence: None)
  Receive Date: 20100310
  Receipt Date: 20100105
  Transmission Date: 20100710
  Serious: No
  Sender: FDA-Public Use
  Company Number: US-BIOGENIDEC-2010BI000668

PATIENT
  Age: 32 Year
  Sex: Female

DRUGS (3)
  1. AVONEX [Suspect]
     Indication: MULTIPLE SCLEROSIS
     Route: 030
     Dates: start: 20010320, end: 20071020
  2. AVONEX [Suspect]
     Route: 030
     Dates: start: 20080208, end: 20090701
  3. AVONEX [Suspect]
     Route: 030
     Dates: start: 20091204

REACTIONS (1)
  - WISDOM TEETH REMOVAL [None]
